FAERS Safety Report 6265872-7 (Version None)
Quarter: 2009Q3

REPORT INFORMATION
  Report Type: 
  Country: None (occurrence: None)
  Receive Date: 20090708
  Receipt Date: 20090708
  Transmission Date: 20100115
  Serious: No
  Sender: FDA-Public Use
  Company Number: None

PATIENT
  Sex: Female
  Weight: 65 kg

DRUGS (3)
  1. CARBOPLATIN [Suspect]
     Dosage: 370 MG
  2. ERBITUX [Suspect]
     Dosage: 420 MG
  3. TAXOL [Suspect]
     Dosage: 336 MG

REACTIONS (10)
  - ABDOMINAL PAIN UPPER [None]
  - CHEST PAIN [None]
  - DRUG HYPERSENSITIVITY [None]
  - DYSPNOEA [None]
  - ERYTHEMA [None]
  - FEELING HOT [None]
  - OXYGEN SATURATION DECREASED [None]
  - PRURITUS [None]
  - RASH [None]
  - WHEEZING [None]
